FAERS Safety Report 7308458-5 (Version None)
Quarter: 2011Q1

REPORT INFORMATION
  Report Type: 
  Country: None (occurrence: None)
  Receive Date: 20110223
  Receipt Date: 20110216
  Transmission Date: 20110831
  Serious: No
  Sender: FDA-Public Use
  Company Number: US-BIOGENIDEC-2011BI006171

PATIENT
  Sex: Male

DRUGS (5)
  1. AVONEX [Suspect]
     Route: 030
     Dates: start: 20030101
  2. AVONEX [Suspect]
     Indication: MULTIPLE SCLEROSIS
     Route: 030
     Dates: start: 20110101
  3. BACLOFEN [Concomitant]
     Indication: MUSCLE SPASMS
  4. DILANTIN [Concomitant]
     Indication: CONVULSION
  5. AVONEX [Suspect]
     Route: 030
     Dates: end: 20030101

REACTIONS (3)
  - GAIT DISTURBANCE [None]
  - NERVOUS SYSTEM DISORDER [None]
  - PAIN [None]
